FAERS Safety Report 23440471 (Version 1)
Quarter: 2024Q1

REPORT INFORMATION
  Report Type: Spontaneous
  Country: GB (occurrence: GB)
  Receive Date: 20240125
  Receipt Date: 20240125
  Transmission Date: 20240409
  Serious: Yes (Other)
  Sender: FDA-Public Use
  Company Number: None

PATIENT

DRUGS (2)
  1. ATORVASTATIN [Suspect]
     Active Substance: ATORVASTATIN
     Indication: Product used for unknown indication
     Dosage: 40 MG AT NIGHT
     Route: 065
  2. LIPITOR [Concomitant]
     Active Substance: ATORVASTATIN CALCIUM
     Indication: Product used for unknown indication
     Route: 065

REACTIONS (8)
  - Foreign body in throat [Unknown]
  - Pharyngeal swelling [Recovered/Resolved]
  - Ear pain [Unknown]
  - Pain in jaw [Unknown]
  - Pharyngeal erythema [Unknown]
  - Product taste abnormal [Unknown]
  - Product substitution issue [Unknown]
  - Hypersensitivity [Unknown]
